FAERS Safety Report 6523989-3 (Version None)
Quarter: 2009Q4

REPORT INFORMATION
  Report Type: 
  Country: None (occurrence: None)
  Receive Date: 20091231
  Receipt Date: 20091221
  Transmission Date: 20100525
  Serious: Yes (Hospitalization)
  Sender: FDA-Public Use
  Company Number: NSADSS2002033697

PATIENT
  Sex: Male
  Weight: 69.4 kg

DRUGS (10)
  1. REMICADE [Suspect]
     Route: 041
     Dates: start: 20020618
  2. REMICADE [Suspect]
     Indication: RHEUMATOID ARTHRITIS
     Route: 041
     Dates: start: 20020618
  3. ARAVA [Suspect]
     Indication: RHEUMATOID ARTHRITIS
     Dosage: 1 YEAR
  4. PROCARDIA XL [Concomitant]
     Indication: HYPERTENSION
  5. DIOVAN HCT [Concomitant]
  6. METHOTREXATE [Concomitant]
  7. PREDNISONE [Concomitant]
     Indication: RHEUMATOID ARTHRITIS
  8. FOLIC ACID [Concomitant]
  9. NEXIUM [Concomitant]
  10. ADVIL [Concomitant]

REACTIONS (12)
  - ANAEMIA [None]
  - CHRONIC OBSTRUCTIVE PULMONARY DISEASE [None]
  - DYSPNOEA [None]
  - HYPERTENSION [None]
  - MENINGITIS LISTERIA [None]
  - MOUTH ULCERATION [None]
  - NEPHROLITHIASIS [None]
  - NOCTURIA [None]
  - OEDEMA [None]
  - PROSTATISM [None]
  - RENAL FAILURE CHRONIC [None]
  - RHEUMATOID ARTHRITIS [None]
